FAERS Safety Report 25623491 (Version 3)
Quarter: 2025Q4

REPORT INFORMATION
  Report Type: Report from Study
  Country: EU (occurrence: EU)
  Receive Date: 20250730
  Receipt Date: 20251127
  Transmission Date: 20260118
  Serious: Yes (Other)
  Sender: ABBVIE
  Company Number: EU-JNJFOC-20250727472

PATIENT
  Age: 69 Year
  Sex: Male

DRUGS (2)
  1. IBRUTINIB [Suspect]
     Active Substance: IBRUTINIB
     Indication: Lymphocytic leukaemia
     Route: 048
     Dates: start: 20241021
  2. IBRUTINIB [Suspect]
     Active Substance: IBRUTINIB
     Indication: Lymphocytic leukaemia
     Dosage: DOSE REDUCED
     Route: 048

REACTIONS (6)
  - Polyneuropathy [Recovering/Resolving]
  - Pancytopenia [Unknown]
  - Thrombocytopenia [Recovered/Resolved]
  - Muscle spasms [Unknown]
  - Leukopenia [Recovered/Resolved]
  - Oedema peripheral [Unknown]

NARRATIVE: CASE EVENT DATE: 20250120
